FAERS Safety Report 13178419 (Version 1)
Quarter: 2017Q1

REPORT INFORMATION
  Report Type: Spontaneous
  Country: US (occurrence: US)
  Receive Date: 20170202
  Receipt Date: 20170202
  Transmission Date: 20170428
  Serious: No
  Sender: FDA-Public Use
  Company Number: US-BIOGEN-2017BI00352167

PATIENT
  Sex: Female

DRUGS (1)
  1. TECFIDERA [Suspect]
     Active Substance: DIMETHYL FUMARATE
     Indication: MULTIPLE SCLEROSIS
     Route: 065
     Dates: start: 20161006

REACTIONS (6)
  - Gait disturbance [Unknown]
  - Headache [Unknown]
  - Rash [Unknown]
  - Insomnia [Unknown]
  - Visual impairment [Unknown]
  - Pruritus [Unknown]
